FAERS Safety Report 6178199-9 (Version None)
Quarter: 2009Q2

REPORT INFORMATION
  Report Type: 
  Country: None (occurrence: None)
  Receive Date: 20090504
  Receipt Date: 20090430
  Transmission Date: 20091009
  Serious: Yes (Hospitalization, Other)
  Sender: FDA-Public Use
  Company Number: US-B.I. PHARMACEUTICALS,INC./RIDGEFIELD-2009-BP-02868BP

PATIENT
  Sex: Male
  Weight: 83 kg

DRUGS (3)
  1. SPIRIVA [Suspect]
     Indication: CHRONIC OBSTRUCTIVE PULMONARY DISEASE
     Dosage: 18MCG
     Route: 055
     Dates: end: 20070101
  2. OTHER PRESCRIPTION MEDICATIONS [Concomitant]
     Indication: DYSPNOEA
  3. ZOCOR [Concomitant]

REACTIONS (3)
  - COLON CANCER [None]
  - EPISTAXIS [None]
  - HERNIA [None]
